FAERS Safety Report 23369147 (Version 1)
Quarter: 2024Q1

REPORT INFORMATION
  Report Type: Spontaneous
  Country: US (occurrence: None)
  Receive Date: 20240105
  Receipt Date: 20240105
  Transmission Date: 20240410
  Serious: Yes (Other)
  Sender: FDA-Public Use
  Company Number: US-MLMSERVICE-20231214-4725392-1

PATIENT
  Age: 20 Year
  Sex: Female

DRUGS (5)
  1. FLUCONAZOLE [Concomitant]
     Active Substance: FLUCONAZOLE
     Indication: Evidence based treatment
     Dosage: ()
  2. PIPERACILLIN SODIUM\TAZOBACTAM SODIUM [Suspect]
     Active Substance: PIPERACILLIN SODIUM\TAZOBACTAM SODIUM
     Indication: Tubo-ovarian abscess
     Dosage: ()
  3. VANCOMYCIN [Suspect]
     Active Substance: VANCOMYCIN
     Indication: Tubo-ovarian abscess
     Dosage: ()
  4. DOXYCYCLINE [Concomitant]
     Active Substance: DOXYCYCLINE
     Indication: Evidence based treatment
     Dosage: ()
  5. RITUXIMAB [Concomitant]
     Active Substance: RITUXIMAB
     Indication: Multiple sclerosis
     Dosage: TWICE ANNUALLY ()

REACTIONS (1)
  - Nephropathy toxic [Recovering/Resolving]
